FAERS Safety Report 6800269-X (Version None)
Quarter: 2010Q2

REPORT INFORMATION
  Report Type: 
  Country: None (occurrence: None)
  Receive Date: 20100616
  Receipt Date: 20100602
  Transmission Date: 20101027
  Serious: Yes (Other)
  Sender: FDA-Public Use
  Company Number: 2010069513

PATIENT
  Age: 76 Year
  Sex: Female

DRUGS (6)
  1. FRAGMIN [Suspect]
  2. MARCUMAR [Concomitant]
  3. TIZANIDINE HCL [Concomitant]
  4. TAVEGYL (CLEMASTINE) [Concomitant]
  5. CONDROSULF (CHONDROITIN SULFATE SODIUM) [Concomitant]
  6. ACETAMINOPHEN [Concomitant]

REACTIONS (3)
  - DIARRHOEA [None]
  - DRUG HYPERSENSITIVITY [None]
  - PARAESTHESIA [None]
